FAERS Safety Report 5754439-2 (Version None)
Quarter: 2008Q2

REPORT INFORMATION
  Report Type: 
  Country: None (occurrence: None)
  Receive Date: 20080530
  Receipt Date: 20080424
  Transmission Date: 20081010
  Serious: Yes (Hospitalization)
  Sender: FDA-Public Use
  Company Number: US-BOEHRINGER INGELHEIM GMBH, GERMANY-2007-BP-19737BP

PATIENT
  Sex: Female
  Weight: 75 kg

DRUGS (31)
  1. MIRAPEX [Suspect]
     Indication: RESTLESS LEGS SYNDROME
     Dates: start: 20031201
  2. MIRAPEX [Suspect]
     Dates: end: 20060401
  3. TYLENOL [Concomitant]
     Indication: PAIN
  4. MOTRIN [Concomitant]
     Indication: PAIN
  5. XANAX [Concomitant]
     Indication: DEPRESSION
  6. LISINOPRIL [Concomitant]
     Indication: BLOOD PRESSURE
  7. HYDROXYZ HCL [Concomitant]
     Indication: BLOOD CHOLESTEROL
  8. CARBIDOPA AND LEVODOPA [Concomitant]
     Indication: RESTLESS LEGS SYNDROME
  9. OMEPRAZOLE [Concomitant]
     Indication: GASTROOESOPHAGEAL REFLUX DISEASE
  10. ZOCOR [Concomitant]
     Indication: BLOOD CHOLESTEROL
  11. NORTRIPTYLINE HCL [Concomitant]
     Indication: DEPRESSION
  12. VICODIN [Concomitant]
     Indication: PAIN
  13. SEROQUEL [Concomitant]
  14. LEXAPRO [Concomitant]
  15. EFFEXOR XR [Concomitant]
  16. LIPITOR [Concomitant]
  17. ZELNORM [Concomitant]
  18. ZYRTEC [Concomitant]
  19. SOMA [Concomitant]
  20. PROTONIX [Concomitant]
  21. SKELAXIN [Concomitant]
  22. CYMBALTA [Concomitant]
  23. STALEVO 100 [Concomitant]
  24. LYRICA [Concomitant]
  25. K-DUR [Concomitant]
  26. REMERON [Concomitant]
  27. ZESTRIL [Concomitant]
  28. ACTOS [Concomitant]
  29. DETROL [Concomitant]
  30. LUVOX [Concomitant]
  31. NEXIUM [Concomitant]

REACTIONS (10)
  - ANXIETY [None]
  - DEPRESSION [None]
  - EMOTIONAL DISTRESS [None]
  - FEAR [None]
  - INTENTIONAL OVERDOSE [None]
  - OBSESSIVE-COMPULSIVE DISORDER [None]
  - PAIN [None]
  - PATHOLOGICAL GAMBLING [None]
  - STRESS [None]
  - SUICIDE ATTEMPT [None]
